FAERS Safety Report 16823466 (Version 1)
Quarter: 2019Q3

REPORT INFORMATION
  Report Type: Spontaneous
  Country: PK (occurrence: PK)
  Receive Date: 20190918
  Receipt Date: 20190918
  Transmission Date: 20191005
  Serious: Yes (Hospitalization, Other)
  Sender: FDA-Public Use
  Company Number: PK-GILEAD-2019-0427843

PATIENT
  Age: 27 Year
  Sex: Male

DRUGS (3)
  1. EFAVIRENZ. [Concomitant]
     Active Substance: EFAVIRENZ
  2. VIREAD [Suspect]
     Active Substance: TENOFOVIR DISOPROXIL FUMARATE
     Indication: HIV INFECTION
     Dosage: UNK
     Route: 065
  3. LAMIVUDINE. [Concomitant]
     Active Substance: LAMIVUDINE

REACTIONS (2)
  - Acute kidney injury [Unknown]
  - Myeloma cast nephropathy [Unknown]
